FAERS Safety Report 8047081-4 (Version None)
Quarter: 2012Q1

REPORT INFORMATION
  Report Type: 
  Country: None (occurrence: None)
  Receive Date: 20120116
  Receipt Date: 20120102
  Transmission Date: 20120608
  Serious: Yes (Hospitalization)
  Sender: FDA-Public Use
  Company Number: FR-ELI_LILLY_AND_COMPANY-FR201201000014

PATIENT
  Sex: Female

DRUGS (15)
  1. OXAZEPAM [Concomitant]
     Dosage: 10 MG, QID
  2. EXELON [Concomitant]
     Indication: COGNITIVE DISORDER
     Dosage: 9.5 MG, QD
     Route: 062
     Dates: start: 20110901, end: 20111001
  3. MODOPAR [Concomitant]
     Dosage: 250 MG, QID
     Dates: start: 20110901
  4. DITROPAN [Concomitant]
     Dosage: 5 MG, TID
     Route: 048
     Dates: start: 20071101, end: 20111006
  5. MODOPAR [Concomitant]
     Dosage: 125 MG, BID
  6. LEVOTHYROXINE SODIUM [Concomitant]
     Dosage: 100 UG, UNKNOWN
  7. LITHIUM CARBONATE [Concomitant]
     Dosage: 500 MG, BID
  8. VALSARTAN [Concomitant]
     Dosage: 80 MG, QD
  9. CRESTOR [Concomitant]
     Dosage: 5 MG, QOD
  10. AZILECT [Concomitant]
     Indication: PARKINSONISM
     Dosage: 30 MG, QD
     Route: 048
     Dates: start: 20110701, end: 20111001
  11. ATHYMIL [Concomitant]
     Dosage: UNK
  12. CYMBALTA [Suspect]
     Indication: AFFECTIVE DISORDER
     Dosage: 120 MG, QD
     Route: 048
     Dates: start: 20091101, end: 20111001
  13. XENAZINE [Concomitant]
     Indication: DYSKINESIA
     Dosage: 25 MG, BID
     Route: 048
     Dates: start: 20071001, end: 20100301
  14. MODOPAR [Concomitant]
     Dosage: 250 MG, BID
  15. MODOPAR [Concomitant]
     Dosage: 62.5 MG, OTHER

REACTIONS (3)
  - CONFUSIONAL STATE [None]
  - OFF LABEL USE [None]
  - PARKINSONISM [None]
